FAERS Safety Report 13830136 (Version 1)
Quarter: 2017Q3

REPORT INFORMATION
  Report Type: Spontaneous
  Country: DE (occurrence: DE)
  Receive Date: 20170803
  Receipt Date: 20170803
  Transmission Date: 20171127
  Serious: Yes (Disabling)
  Sender: FDA-Public Use
  Company Number: DE-009507513-1708DEU001143

PATIENT
  Age: 57 Year
  Sex: Male
  Weight: 77 kg

DRUGS (5)
  1. EZETROL [Suspect]
     Active Substance: EZETIMIBE
     Dosage: 40 MG, UNK
     Route: 048
     Dates: start: 1997, end: 2013
  2. SIMVA [Suspect]
     Active Substance: SIMVASTATIN
     Dosage: USE ONLY FEW WEEKS
     Dates: start: 2013
  3. PRAVASTATIN. [Suspect]
     Active Substance: PRAVASTATIN
     Dosage: 10 - 40MG, USE ONLY FEW WEEKS
     Dates: start: 2014
  4. SORTIS [Suspect]
     Active Substance: ATORVASTATIN
     Dosage: 40 MG, UNK
     Dates: start: 1997, end: 2013
  5. CRESTOR [Suspect]
     Active Substance: ROSUVASTATIN CALCIUM
     Dosage: USE ONLY FEW WEEKS
     Dates: start: 2015

REACTIONS (4)
  - Skin disorder [Recovered/Resolved with Sequelae]
  - Scar [Recovered/Resolved with Sequelae]
  - Rash papular [Recovered/Resolved with Sequelae]
  - Pruritus [Recovered/Resolved with Sequelae]

NARRATIVE: CASE EVENT DATE: 2013
